FAERS Safety Report 6942198-7 (Version None)
Quarter: 2010Q3

REPORT INFORMATION
  Report Type: 
  Country: None (occurrence: None)
  Receive Date: 20100826
  Receipt Date: 20100816
  Transmission Date: 20110219
  Serious: Yes (Other)
  Sender: FDA-Public Use
  Company Number: JP-SANOFI-AVENTIS-2010SA048518

PATIENT
  Age: 68 Year
  Sex: Male
  Weight: 48 kg

DRUGS (8)
  1. OXALIPLATIN [Suspect]
     Indication: RECTAL CANCER RECURRENT
     Route: 041
     Dates: start: 20100308, end: 20100308
  2. OXALIPLATIN [Suspect]
     Route: 041
     Dates: start: 20100525, end: 20100525
  3. AVASTIN [Suspect]
     Indication: RECTAL CANCER RECURRENT
     Route: 041
     Dates: start: 20100405, end: 20100405
  4. AVASTIN [Suspect]
     Route: 041
     Dates: start: 20100524, end: 20100524
  5. FLUOROURACIL [Suspect]
     Indication: RECTAL CANCER RECURRENT
     Route: 040
     Dates: start: 20100308, end: 20100308
  6. FLUOROURACIL [Suspect]
     Route: 040
     Dates: start: 20100525, end: 20100525
  7. CALCIUM LEVOFOLINATE [Suspect]
     Indication: RECTAL CANCER RECURRENT
     Route: 041
     Dates: start: 20100308, end: 20100308
  8. CALCIUM LEVOFOLINATE [Suspect]
     Route: 041
     Dates: start: 20100525, end: 20100525

REACTIONS (4)
  - ILEAL PERFORATION [None]
  - PYREXIA [None]
  - RECTAL PERFORATION [None]
  - WHITE BLOOD CELL COUNT INCREASED [None]
